FAERS Safety Report 21382358 (Version 2)
Quarter: 2022Q3

REPORT INFORMATION
  Report Type: Report from Study
  Country: CN (occurrence: None)
  Receive Date: 20220927
  Receipt Date: 20220930
  Transmission Date: 20221027
  Serious: Yes (Death)
  Sender: FDA-Public Use
  Company Number: CN-ROCHE-3185472

PATIENT
  Age: 65 Year
  Sex: Female
  Weight: 40 kg

DRUGS (1)
  1. ENTRECTINIB [Suspect]
     Active Substance: ENTRECTINIB
     Indication: Non-small cell lung cancer
     Dosage: ON 15/SEP/2022, SHE RECEIVED LAST DOSE OF ENTRECTINIB ADMINISTERED PRIOR TO AE/SAE 600 MG. (600 MG (
     Route: 048
     Dates: start: 20220803

REACTIONS (1)
  - Death [Fatal]

NARRATIVE: CASE EVENT DATE: 20220916
